FAERS Safety Report 8789173 (Version 1)
Quarter: 2012Q4

REPORT INFORMATION
  Report Type: Spontaneous
  Country: US (occurrence: None)
  Receive Date: 20120910
  Receipt Date: 20120910
  Transmission Date: 20130627
  Serious: No
  Sender: FDA-Public Use
  Company Number: None

PATIENT
  Age: 56 Year
  Sex: Male

DRUGS (2)
  1. ALPHAGAN P [Suspect]
     Indication: GLAUCOMA
     Dosage: One drop both eyes twice daily 046
     Dates: start: 2001, end: 2004
  2. LUMIGAN� 0.01% [Suspect]
     Dosage: One drop both eyes once daily 046
     Route: 047
     Dates: start: 2001, end: 2004

REACTIONS (1)
  - Ocular hyperaemia [None]
